FAERS Safety Report 5253901-9 (Version None)
Quarter: 2007Q1

REPORT INFORMATION
  Report Type: 
  Country: None (occurrence: None)
  Receive Date: 20070228
  Receipt Date: 20070228
  Transmission Date: 20070707
  Serious: No
  Sender: FDA-Public Use
  Company Number: None

PATIENT
  Sex: Female
  Weight: 78.2908 kg

DRUGS (1)
  1. TAXOL [Suspect]
     Indication: BREAST CANCER
     Dosage: 1 45MG Q WEEKLY IV
     Route: 042
     Dates: start: 20070202, end: 20070216

REACTIONS (2)
  - CHEST DISCOMFORT [None]
  - FLUSHING [None]
